FAERS Safety Report 4872982-5 (Version None)
Quarter: 2006Q1

REPORT INFORMATION
  Report Type: 
  Country: None (occurrence: None)
  Receive Date: 20060105
  Receipt Date: 20050808
  Transmission Date: 20060701
  Serious: No
  Sender: FDA-Public Use
  Company Number: US-BRISTOL-MYERS SQUIBB COMPANY-13066741

PATIENT
  Age: 43 Year
  Sex: Female
  Weight: 72 kg

DRUGS (2)
  1. SERZONE [Suspect]
     Indication: DEPRESSION
  2. SERZONE [Suspect]
     Indication: ANXIETY

REACTIONS (1)
  - INFLUENZA LIKE ILLNESS [None]
